FAERS Safety Report 21891072 (Version 1)
Quarter: 2023Q1

REPORT INFORMATION
  Report Type: Spontaneous
  Country: US (occurrence: None)
  Receive Date: 20230119
  Receipt Date: 20230119
  Transmission Date: 20230417
  Serious: Yes (Other)
  Sender: FDA-Public Use
  Company Number: None

PATIENT
  Age: 42 Year
  Sex: Female

DRUGS (1)
  1. SAXENDA [Suspect]
     Active Substance: LIRAGLUTIDE

REACTIONS (4)
  - Injection site reaction [None]
  - Injection site urticaria [None]
  - Injection site pruritus [None]
  - Injection site discolouration [None]

NARRATIVE: CASE EVENT DATE: 20230112
